FAERS Safety Report 24325695 (Version 1)
Quarter: 2024Q3

REPORT INFORMATION
  Report Type: Spontaneous
  Country: SE (occurrence: None)
  Receive Date: 20240917
  Receipt Date: 20240917
  Transmission Date: 20241017
  Serious: Yes (Life-Threatening)
  Sender: ASTRAZENECA
  Company Number: 2024A209706

PATIENT
  Age: 71 Year
  Sex: Male

DRUGS (5)
  1. TICAGRELOR [Suspect]
     Active Substance: TICAGRELOR
     Indication: Dressler^s syndrome
     Route: 048
     Dates: start: 20240910, end: 20240911
  2. HEPARIN [Concomitant]
     Active Substance: HEPARIN SODIUM
     Indication: Angiogram
     Route: 041
     Dates: start: 20240910, end: 20240910
  3. OMEPRAZOLE [Concomitant]
     Active Substance: OMEPRAZOLE
     Indication: Gastric haemorrhage
     Route: 048
     Dates: start: 20240910
  4. THROMBYL [Concomitant]
  5. OMEPRAZOLE [Concomitant]
     Active Substance: OMEPRAZOLE
     Indication: Dyspepsia

REACTIONS (1)
  - Thrombocytopenia [Recovered/Resolved]

NARRATIVE: CASE EVENT DATE: 20240911
